FAERS Safety Report 6723582-3 (Version None)
Quarter: 2010Q2

REPORT INFORMATION
  Report Type: 
  Country: None (occurrence: None)
  Receive Date: 20100513
  Receipt Date: 20100504
  Transmission Date: 20101027
  Serious: Yes (Hospitalization)
  Sender: FDA-Public Use
  Company Number: FR-ASTRAZENECA-2010SE20901

PATIENT
  Age: 63 Year
  Sex: Male

DRUGS (9)
  1. OMEPRAZOLE [Suspect]
     Route: 048
  2. BISOPROLOL [Interacting]
  3. NOVONORM [Interacting]
     Indication: TYPE 2 DIABETES MELLITUS
  4. RAMIPRIL [Interacting]
  5. METFORMIN HYDROCHLORIDE [Concomitant]
  6. ACARBOSE [Concomitant]
  7. CLOPIDOGREL [Concomitant]
  8. SIMVASTATIN [Concomitant]
  9. AMLODIPINE BESYLATE [Concomitant]

REACTIONS (2)
  - DRUG INTERACTION [None]
  - HYPOGLYCAEMIA [None]
